FAERS Safety Report 4865277-7 (Version None)
Quarter: 2005Q4

REPORT INFORMATION
  Report Type: 
  Country: None (occurrence: None)
  Receive Date: 20051223
  Receipt Date: 20050828
  Transmission Date: 20060501
  Serious: Yes (Hospitalization)
  Sender: FDA-Public Use
  Company Number: ZA-SANOFI-SYNTHELABO-A01200506235

PATIENT
  Sex: Male
  Weight: 80 kg

DRUGS (3)
  1. PLAVIX [Suspect]
     Indication: MYOCARDIAL INFARCTION
     Route: 048
     Dates: start: 20050630, end: 20050718
  2. PLAVIX [Suspect]
     Indication: STENT PLACEMENT
     Route: 048
     Dates: start: 20050630, end: 20050718
  3. WARFARIN [Suspect]
     Indication: INTRACARDIAC THROMBUS
     Route: 048
     Dates: start: 20050711

REACTIONS (2)
  - INTRACARDIAC THROMBUS [None]
  - SPLENIC HAEMATOMA [None]
